FAERS Safety Report 6509977-1 (Version None)
Quarter: 2009Q4

REPORT INFORMATION
  Report Type: 
  Country: None (occurrence: None)
  Receive Date: 20091222
  Receipt Date: 20091218
  Transmission Date: 20100525
  Serious: Yes (Other)
  Sender: FDA-Public Use
  Company Number: JP-SANOFI-AVENTIS-200912213JP

PATIENT
  Age: 36 Year
  Sex: Female
  Weight: 44 kg

DRUGS (2)
  1. LANTUS [Suspect]
     Indication: TYPE 1 DIABETES MELLITUS
     Dosage: DOSE AS USED: 4-6 UNITS/TWICE A DAY
     Route: 058
     Dates: start: 20040101, end: 20090901
  2. HUMALOG MIX [Concomitant]
     Dosage: DOSE:3 UNIT(S)
     Route: 058

REACTIONS (1)
  - BREAST ADENOMA [None]
